FAERS Safety Report 10669158 (Version 1)
Quarter: 2014Q4

REPORT INFORMATION
  Report Type: Report from Study
  Country: IL (occurrence: IL)
  Receive Date: 20141222
  Receipt Date: 20141222
  Transmission Date: 20150529
  Serious: Yes (Other)
  Sender: FDA-Public Use
  Company Number: IL-BAXTER-2014BAX074549

PATIENT
  Sex: Female

DRUGS (1)
  1. NACL 0.9% INTRAVENOUS SOLUTION BP [Suspect]
     Active Substance: SODIUM CHLORIDE
     Indication: INFUSION
     Route: 065

REACTIONS (2)
  - Pyrexia [Unknown]
  - Exposure during pregnancy [Recovered/Resolved]
